FAERS Safety Report 5551562-2 (Version None)
Quarter: 2007Q4

REPORT INFORMATION
  Report Type: 
  Country: None (occurrence: None)
  Receive Date: 20071128
  Receipt Date: 20070623
  Transmission Date: 20080405
  Serious: Yes (Other)
  Sender: FDA-Public Use
  Company Number: 2007052769

PATIENT
  Sex: Male

DRUGS (2)
  1. LIPITOR [Suspect]
     Dosage: 40 MG
  2. PRAVASTATIN [Suspect]

REACTIONS (3)
  - DRUG INEFFECTIVE [None]
  - MYALGIA [None]
  - MYOSITIS [None]
